FAERS Safety Report 6422052-X (Version None)
Quarter: 2009Q4

REPORT INFORMATION
  Report Type: 
  Country: None (occurrence: None)
  Receive Date: 20091030
  Receipt Date: 20091019
  Transmission Date: 20100525
  Serious: Yes (Hospitalization, Disabling, Other)
  Sender: FDA-Public Use
  Company Number: GB-ROCHE-663587

PATIENT
  Age: 36 Year
  Sex: Female

DRUGS (5)
  1. TAMIFLU [Suspect]
     Route: 065
     Dates: start: 20090809, end: 20090814
  2. LEVOTHYROXINE SODIUM [Concomitant]
  3. ESOMEPRAZOLE MAGNESIUM [Concomitant]
  4. NORTRIPTYLINE [Concomitant]
  5. NITRAZEPAM [Concomitant]

REACTIONS (5)
  - DIARRHOEA [None]
  - GAMMA-GLUTAMYLTRANSFERASE INCREASED [None]
  - HEPATITIS [None]
  - LIVER FUNCTION TEST ABNORMAL [None]
  - MALAISE [None]
